FAERS Safety Report 6698968-6 (Version None)
Quarter: 2010Q2

REPORT INFORMATION
  Report Type: 
  Country: None (occurrence: None)
  Receive Date: 20100427
  Receipt Date: 20100416
  Transmission Date: 20101027
  Serious: Yes (Hospitalization, Other)
  Sender: FDA-Public Use
  Company Number: B0647812A

PATIENT
  Sex: Male

DRUGS (1)
  1. AVOLVE [Suspect]
     Indication: DRUG USE FOR UNKNOWN INDICATION
     Dosage: .5MG PER DAY
     Route: 048

REACTIONS (1)
  - PLASMACYTOMA [None]
